FAERS Safety Report 5289604-4 (Version None)
Quarter: 2007Q2

REPORT INFORMATION
  Report Type: 
  Country: None (occurrence: None)
  Receive Date: 20070406
  Receipt Date: 20070326
  Transmission Date: 20071010
  Serious: Yes (Hospitalization)
  Sender: FDA-Public Use
  Company Number: PHRM2007FR01129

PATIENT
  Age: 13 Year
  Sex: Male
  Weight: 40 kg

DRUGS (10)
  1. SOLU-MEDROL [Suspect]
     Dosage: 40 MG, QD
     Route: 042
  2. FOSCAVIR [Suspect]
     Dosage: 3.5 MG, QD
     Route: 042
     Dates: end: 20070209
  3. PENTASA [Suspect]
     Dosage: 500 MG, TID
     Route: 048
  4. OMEPRAZOLE [Suspect]
     Dosage: 40 MG, QD
     Route: 048
  5. NALBUPHINE [Concomitant]
  6. PLITICAN [Concomitant]
  7. ENTOCORT [Concomitant]
  8. SPORANOX [Concomitant]
  9. TEGELINE [Concomitant]
     Dosage: EVERY TWO WEEKS
  10. GLEEVEC [Suspect]
     Indication: ACUTE LEUKAEMIA
     Dosage: 400 MG, QD
     Route: 048
     Dates: start: 20070123

REACTIONS (1)
  - BLOOD AMYLASE INCREASED [None]
